FAERS Safety Report 12289842 (Version 1)
Quarter: 2016Q2

REPORT INFORMATION
  Report Type: Spontaneous
  Country: US (occurrence: US)
  Receive Date: 20160421
  Receipt Date: 20160421
  Transmission Date: 20160815
  Serious: No
  Sender: FDA-Public Use
  Company Number: US-MISSION PHARMACAL COMPANY-1050812

PATIENT
  Age: 21 Year
  Sex: Male

DRUGS (2)
  1. THIOLA [Suspect]
     Active Substance: TIOPRONIN
     Indication: NEPHROLITHIASIS
     Route: 065
     Dates: start: 20151114
  2. THIOLA [Suspect]
     Active Substance: TIOPRONIN
     Indication: URETEROLITHIASIS
     Route: 065
     Dates: start: 20151114

REACTIONS (2)
  - Renal stone removal [Unknown]
  - Drug ineffective [Unknown]
